FAERS Safety Report 22316597 (Version 2)
Quarter: 2023Q2

REPORT INFORMATION
  Report Type: Report from Study
  Country: US (occurrence: None)
  Receive Date: 20230513
  Receipt Date: 20230518
  Transmission Date: 20230721
  Serious: Yes (Disabling)
  Sender: FDA-Public Use
  Company Number: US-ROCHE-3344577

PATIENT
  Age: 79 Year
  Sex: Female

DRUGS (20)
  1. RANIBIZUMAB [Suspect]
     Active Substance: RANIBIZUMAB
     Indication: Neovascular age-related macular degeneration
     Dosage: DRUG DOSE FIRST ADMINISTERED IS 100 MG/ML, DOSE LAST STUDY DRUG ADMIN PRIOR AE AND SAE IS 100 MG/ML,
     Route: 050
     Dates: start: 20220608
  2. RANIBIZUMAB [Suspect]
     Active Substance: RANIBIZUMAB
  3. RANIBIZUMAB [Suspect]
     Active Substance: RANIBIZUMAB
  4. RANIBIZUMAB [Suspect]
     Active Substance: RANIBIZUMAB
  5. RANIBIZUMAB [Suspect]
     Active Substance: RANIBIZUMAB
  6. RANIBIZUMAB [Suspect]
     Active Substance: RANIBIZUMAB
  7. RANIBIZUMAB [Concomitant]
     Active Substance: RANIBIZUMAB
     Dosage: DOSE LAST STUDY DRUG ADMIN PRIOR AE AND SAE IS 0.5 MG/ML, START DATE OF MOST RECENT DOSE OF STUDY DR
     Route: 050
     Dates: start: 20220614
  8. CADUET [Concomitant]
     Active Substance: AMLODIPINE BESYLATE\ATORVASTATIN CALCIUM
     Indication: Hypertension
     Route: 048
     Dates: start: 20190115
  9. ACETAMINOPHEN [Concomitant]
     Active Substance: ACETAMINOPHEN
     Indication: Arthritis
     Route: 048
     Dates: start: 2000
  10. LOSARTAN [Concomitant]
     Active Substance: LOSARTAN
     Indication: Hypertension
     Route: 048
     Dates: start: 20190311
  11. ESOMEPRAZOLE [Concomitant]
     Active Substance: ESOMEPRAZOLE
     Indication: Gastrooesophageal reflux disease
     Route: 048
     Dates: start: 20190311
  12. ALBUTEROL SULFATE [Concomitant]
     Active Substance: ALBUTEROL SULFATE
     Indication: Asthma
     Route: 055
     Dates: start: 20180110
  13. CALCIUM CARBONATE [Concomitant]
     Active Substance: CALCIUM CARBONATE
     Indication: Osteoarthritis
     Route: 048
     Dates: start: 2018
  14. AMLODIPINE [Concomitant]
     Active Substance: AMLODIPINE BESYLATE
     Indication: Hypertension
     Route: 048
     Dates: start: 20190115
  15. ATORVASTATIN [Concomitant]
     Active Substance: ATORVASTATIN
     Indication: Hypertension
     Route: 048
     Dates: start: 20190119
  16. AZELASTINE [Concomitant]
     Active Substance: AZELASTINE
     Indication: Rhinitis allergic
     Route: 048
     Dates: start: 20220913
  17. CYCLOBENZAPRINE [Concomitant]
     Active Substance: CYCLOBENZAPRINE
     Indication: Rib fracture
     Route: 048
     Dates: start: 20221213
  18. LIDOCAINE [Concomitant]
     Active Substance: LIDOCAINE
     Indication: Rib fracture
     Route: 062
     Dates: start: 20221207
  19. OFLOXACIN [Concomitant]
     Active Substance: OFLOXACIN
     Dates: start: 20230503, end: 20230503
  20. OFLOXACIN [Concomitant]
     Active Substance: OFLOXACIN
     Dates: start: 20230505, end: 20230505

REACTIONS (1)
  - Humerus fracture [Not Recovered/Not Resolved]

NARRATIVE: CASE EVENT DATE: 20230501
